FAERS Safety Report 7237018-X (Version None)
Quarter: 2011Q1

REPORT INFORMATION
  Report Type: 
  Country: None (occurrence: None)
  Receive Date: 20110121
  Receipt Date: 20110114
  Transmission Date: 20110831
  Serious: No
  Sender: FDA-Public Use
  Company Number: US-BIOGENIDEC-2011BI001988

PATIENT
  Age: 51 Year
  Sex: Female

DRUGS (2)
  1. TYSABRI [Suspect]
     Indication: MULTIPLE SCLEROSIS
     Route: 042
     Dates: start: 20080601, end: 20100601
  2. TYSABRI [Suspect]
     Route: 042
     Dates: start: 20101001, end: 20110101

REACTIONS (2)
  - FATIGUE [None]
  - SKIN INDURATION [None]
